FAERS Safety Report 7648955-6 (Version None)
Quarter: 2011Q3

REPORT INFORMATION
  Report Type: 
  Country: None (occurrence: None)
  Receive Date: 20110802
  Receipt Date: 20110719
  Transmission Date: 20111222
  Serious: Yes (Life-Threatening, Hospitalization, Other)
  Sender: FDA-Public Use
  Company Number: JP-AMGEN-US390698

PATIENT
  Age: 52 Year
  Sex: Female
  Weight: 46 kg

DRUGS (31)
  1. PREDNISOLONE [Concomitant]
     Dosage: UNK
     Route: 048
     Dates: start: 20081017, end: 20081225
  2. PREDNISOLONE [Concomitant]
     Dosage: UNK
     Route: 048
     Dates: start: 20080822, end: 20081007
  3. RHEUMATREX [Suspect]
     Indication: RHEUMATOID ARTHRITIS
     Dosage: 6 MG, 1X/WK
     Route: 048
     Dates: start: 20080207, end: 20080515
  4. PREDNISOLONE [Concomitant]
     Dosage: 3 MG, QD
     Route: 048
     Dates: start: 20080627, end: 20080822
  5. RHEUMATREX [Suspect]
     Dosage: 6 MG, QWK
     Dates: start: 20090417, end: 20091003
  6. PREDNISOLONE [Concomitant]
     Dosage: 5 MG, QD
     Dates: start: 20050101
  7. PREDNISOLONE [Concomitant]
     Dosage: 5 MG, QD
     Dates: start: 20080502
  8. PREDNISOLONE [Concomitant]
     Dosage: UNK
     Route: 065
     Dates: start: 20080502
  9. PREDNISOLONE [Concomitant]
     Dosage: UNK
     Route: 048
     Dates: start: 20080207, end: 20080530
  10. PREDNISOLONE [Concomitant]
     Dosage: UNK
     Route: 048
     Dates: start: 20080627, end: 20080822
  11. ENBREL [Suspect]
     Indication: RHEUMATOID ARTHRITIS
     Dosage: 25 MG, WEEKLY
     Route: 058
     Dates: start: 20080501, end: 20091002
  12. RHEUMATREX [Suspect]
     Dosage: 6 MG, QWK
     Route: 048
     Dates: start: 20080515, end: 20090416
  13. PREDNISOLONE [Concomitant]
     Dosage: 4 MG, QD
     Route: 048
     Dates: start: 20080530, end: 20080627
  14. PREDNISOLONE [Concomitant]
     Dosage: UNK
     Route: 065
     Dates: start: 20080207
  15. PREDNISOLONE [Concomitant]
     Dosage: UNK
     Route: 048
     Dates: start: 20080627, end: 20080822
  16. PREDNISOLONE [Concomitant]
     Dosage: UNK
     Route: 048
     Dates: start: 20080207
  17. PREDNISOLONE [Concomitant]
     Dosage: 2 MG, QD
     Route: 048
     Dates: start: 20080822, end: 20081007
  18. PREDNISOLONE [Concomitant]
     Dosage: UNK
     Route: 048
     Dates: start: 20081017, end: 20081225
  19. CELECOXIB [Concomitant]
     Dosage: UNK
     Route: 048
     Dates: start: 20080207, end: 20080515
  20. PREDNISOLONE [Concomitant]
     Dosage: UNK
     Route: 048
     Dates: start: 20080207, end: 20080530
  21. PREDNISOLONE [Concomitant]
     Dosage: 1 MG, QD
     Route: 048
     Dates: start: 20081017, end: 20081225
  22. PREDNISOLONE [Concomitant]
     Dosage: 5 MG, QD
     Dates: start: 20080207
  23. PREDNISOLONE [Concomitant]
     Dosage: UNK
     Route: 048
     Dates: start: 20080530, end: 20080627
  24. PREDNISOLONE [Concomitant]
     Dosage: UNK
     Route: 048
     Dates: start: 20050101
  25. CELECOXIB [Concomitant]
     Dosage: UNK
     Route: 048
     Dates: start: 20080606, end: 20091005
  26. ALENDRONATE SODIUM [Concomitant]
     Dosage: UNK
     Route: 048
     Dates: start: 20080207, end: 20091005
  27. PREDNISOLONE [Concomitant]
     Dosage: UNK
     Route: 065
     Dates: start: 20050101
  28. PREDNISOLONE [Concomitant]
     Dosage: UNK
     Route: 048
     Dates: start: 20080822, end: 20081007
  29. CELECOXIB [Concomitant]
     Dosage: UNK
     Route: 048
     Dates: start: 20080515, end: 20080606
  30. PREDNISOLONE [Concomitant]
     Dosage: UNK
     Route: 048
     Dates: start: 20080502
  31. PREDNISOLONE [Concomitant]
     Dosage: UNK
     Route: 048
     Dates: start: 20080530, end: 20080627

REACTIONS (3)
  - LYMPHOPROLIFERATIVE DISORDER [None]
  - COUGH [None]
  - T-CELL LYMPHOMA STAGE IV [None]
